FAERS Safety Report 19647381 (Version 1)
Quarter: 2021Q3

REPORT INFORMATION
  Report Type: Spontaneous
  Country: FR (occurrence: FR)
  Receive Date: 20210802
  Receipt Date: 20210802
  Transmission Date: 20211014
  Serious: Yes (Other)
  Sender: FDA-Public Use
  Company Number: FR-ORGANON-O2107FRA002245

PATIENT
  Age: 78 Year
  Sex: Female

DRUGS (6)
  1. LOSARTAN ZENTIVA 50MG, COMPRIM? PELLICUL? S?CABLE [Suspect]
     Active Substance: LOSARTAN
     Indication: HYPERTENSION
     Dosage: 50 MILLIGRAM, QD; SCORED FILM?COATED
     Route: 048
  2. OMEPRAZOLE. [Concomitant]
     Active Substance: OMEPRAZOLE
     Indication: OESOPHAGITIS
     Dosage: 20 MILLIGRAM, QD
     Route: 048
     Dates: start: 1988
  3. LEVOTHYROXINE. [Concomitant]
     Active Substance: LEVOTHYROXINE
     Indication: HYPOTHYROIDISM
     Dosage: 75 MICROGRAM, QD
     Route: 048
  4. ACETYLSALICYLATE LYSINE [Concomitant]
     Active Substance: ASPIRIN DL-LYSINE
     Indication: FACIAL PARALYSIS
     Dosage: 75 MILLIGRAM, QD
     Route: 048
     Dates: start: 2012
  5. METFORMIN [Concomitant]
     Active Substance: METFORMIN HYDROCHLORIDE
     Indication: DIABETES MELLITUS
     Dosage: 850 MILLIGRAM, QD
     Route: 048
  6. HEPTAMINOL;TROXERUTIN [Concomitant]
     Indication: LIMB DISCOMFORT
     Dosage: 300 MG, 300 MG
     Route: 048

REACTIONS (1)
  - Pulmonary vasculitis [Not Recovered/Not Resolved]
